FAERS Safety Report 10039960 (Version 1)
Quarter: 2014Q1

REPORT INFORMATION
  Report Type: Spontaneous
  Country: CA (occurrence: CA)
  Receive Date: 20140326
  Receipt Date: 20140326
  Transmission Date: 20141002
  Serious: Yes (Death, Other)
  Sender: FDA-Public Use
  Company Number: PHHY2014CA033339

PATIENT
  Age: 75 Year
  Sex: Male

DRUGS (2)
  1. HEPARIN [Suspect]
     Route: 042
  2. FRAGMIN [Suspect]
     Route: 058

REACTIONS (9)
  - Cardiac failure [Fatal]
  - Renal failure [Fatal]
  - Penile necrosis [Unknown]
  - Dysuria [Unknown]
  - Scrotal pain [Unknown]
  - Penile erythema [Unknown]
  - Penile haemorrhage [Unknown]
  - Genital swelling [Unknown]
  - Heparin-induced thrombocytopenia [Unknown]
